FAERS Safety Report 6335656-X (Version None)
Quarter: 2009Q3

REPORT INFORMATION
  Report Type: 
  Country: None (occurrence: None)
  Receive Date: 20090831
  Receipt Date: 20090828
  Transmission Date: 20100115
  Serious: Yes (Death, Hospitalization, Other)
  Sender: FDA-Public Use
  Company Number: PHHY2009ES36512

PATIENT
  Age: 15 Year
  Sex: Male

DRUGS (7)
  1. SIMULECT [Suspect]
     Indication: ACUTE GRAFT VERSUS HOST DISEASE
     Dosage: 60 MG, DIVIDED IN 3 DOSES
     Route: 042
     Dates: start: 20090401, end: 20090501
  2. ADALAT [Suspect]
     Indication: HYPERTENSION
     Dosage: 30 MG, QD
     Route: 048
     Dates: start: 20090501, end: 20090602
  3. CEFEPIME [Suspect]
     Indication: LUNG INFECTION
     Dosage: 2 G, BID
     Route: 042
     Dates: start: 20090501, end: 20090602
  4. CANCIDAS [Suspect]
     Indication: LUNG INFECTION
     Dosage: 50 MG, QD
     Route: 042
     Dates: start: 20090501, end: 20090602
  5. KEPRA [Suspect]
     Indication: CONVULSION PROPHYLAXIS
     Dosage: 1 G, BID
     Route: 048
     Dates: start: 20090301, end: 20090602
  6. TACROLIMUS [Concomitant]
  7. CORTICOSTEROIDS [Concomitant]

REACTIONS (13)
  - ACUTE GRAFT VERSUS HOST DISEASE IN SKIN [None]
  - ANURIA [None]
  - BONE MARROW FAILURE [None]
  - COAGULOPATHY [None]
  - GENITAL LESION [None]
  - HYPERTENSION [None]
  - HYPOTHERMIA [None]
  - LUNG INFECTION [None]
  - MULTI-ORGAN FAILURE [None]
  - RENAL FAILURE [None]
  - RESPIRATORY FAILURE [None]
  - SKIN LESION [None]
  - TOXIC EPIDERMAL NECROLYSIS [None]
